FAERS Safety Report 24384944 (Version 1)
Quarter: 2024Q4

REPORT INFORMATION
  Report Type: Spontaneous
  Country: GB (occurrence: GB)
  Receive Date: 20241001
  Receipt Date: 20241001
  Transmission Date: 20250114
  Serious: Yes (Hospitalization, Other)
  Sender: DR REDDYS
  Company Number: None

PATIENT
  Age: 62 Year
  Sex: Male

DRUGS (4)
  1. OMEPRAZOLE [Suspect]
     Active Substance: OMEPRAZOLE
     Indication: Infection
     Dosage: 40 MG, QD
     Dates: start: 2010
  2. OMEPRAZOLE [Suspect]
     Active Substance: OMEPRAZOLE
     Indication: Pain
     Dosage: 20 MG, QD,  ??--2021
     Dates: start: 2021, end: 2021
  3. PREDNISOLONE [Concomitant]
     Active Substance: PREDNISOLONE
     Indication: Eczema
     Dosage: 30 MG, QD
     Route: 048
     Dates: start: 2010
  4. PREDNISOLONE [Concomitant]
     Active Substance: PREDNISOLONE
     Indication: Infection
     Dosage: 30 MG (REDUCING)
     Dates: start: 2010, end: 2011

REACTIONS (8)
  - Drug reaction with eosinophilia and systemic symptoms [Recovered/Resolved]
  - Angioedema [Recovered/Resolved]
  - Lymphadenopathy [Recovered/Resolved]
  - Rash [Recovered/Resolved]
  - Drug eruption [Recovered/Resolved]
  - Epidermal necrosis [Recovered/Resolved]
  - Dermatitis exfoliative [Recovered/Resolved]
  - Parakeratosis [Recovered/Resolved]

NARRATIVE: CASE EVENT DATE: 20100101
